FAERS Safety Report 6910622-1 (Version None)
Quarter: 2010Q3

REPORT INFORMATION
  Report Type: 
  Country: None (occurrence: None)
  Receive Date: 20100806
  Receipt Date: 20100726
  Transmission Date: 20110219
  Serious: Yes (Other)
  Sender: FDA-Public Use
  Company Number: CN-ROCHE-717664

PATIENT
  Sex: Female

DRUGS (2)
  1. TRASTUZUMAB [Suspect]
     Dosage: FORM: INFUSION SOLUTION. LOADING DOSE
     Route: 041
  2. TRASTUZUMAB [Suspect]
     Dosage: MAINTENANCE DOSAGE
     Route: 041

REACTIONS (1)
  - HEPATIC FUNCTION ABNORMAL [None]
